FAERS Safety Report 17527816 (Version 1)
Quarter: 2020Q1

REPORT INFORMATION
  Report Type: Report from Study
  Country: US (occurrence: US)
  Receive Date: 20200311
  Receipt Date: 20200311
  Transmission Date: 20200409
  Serious: Yes (Hospitalization, Other)
  Sender: FDA-Public Use
  Company Number: US-PFIZER INC-2020096976

PATIENT
  Age: 30 Year
  Sex: Male

DRUGS (3)
  1. AZACITIDINE. [Suspect]
     Active Substance: AZACITIDINE
     Indication: ACUTE MYELOID LEUKAEMIA
     Dosage: 50 MG/M2, 1X/DAY (SUBCUTANEOUSLY OR IV ONCE DAILY ON DAYS 1 TO 5)
  2. CYTARABINE. [Suspect]
     Active Substance: CYTARABINE
     Indication: ACUTE MYELOID LEUKAEMIA
     Dosage: 3000 MG/M2, CYCLIC (OVER 4 HOURS FOLLOWED BY MITOXANTRONE)
     Route: 042
  3. MITOXANTRONE HCL [Suspect]
     Active Substance: MITOXANTRONE HYDROCHLORIDE
     Indication: ACUTE MYELOID LEUKAEMIA
     Dosage: 30 MG/M2, CYCLIC (OVER 1 HOUR ONCE EACH ON DAYS 6 AND 10)
     Route: 042

REACTIONS (3)
  - Acute respiratory distress syndrome [Recovered/Resolved]
  - Febrile neutropenia [Recovered/Resolved]
  - Cardiac arrest [Recovered/Resolved]
